FAERS Safety Report 18329787 (Version 1)
Quarter: 2020Q3

REPORT INFORMATION
  Report Type: Spontaneous
  Country: IL (occurrence: IL)
  Receive Date: 20200930
  Receipt Date: 20200930
  Transmission Date: 20201103
  Serious: Yes (Hospitalization, Other)
  Sender: FDA-Public Use
  Company Number: IL-AMGEN-ISRSP2020155714

PATIENT
  Age: 86 Year
  Sex: Female

DRUGS (9)
  1. LOSARDEX [Concomitant]
     Active Substance: LOSARTAN POTASSIUM
     Dosage: 12.5 MILLIGRAM, QD
  2. SOTACOR [SOTALOL HYDROCHLORIDE] [Concomitant]
     Dosage: 80 MILLIGRAM, BID
  3. PROLIA [Suspect]
     Active Substance: DENOSUMAB
     Indication: OSTEOPOROSIS
     Dosage: UNK, Q6MO
     Route: 065
  4. NORVASC [Concomitant]
     Active Substance: AMLODIPINE BESYLATE
     Dosage: 5 MILLIGRAM, QD
  5. SOMATULINE [LANREOTIDE] [Concomitant]
     Active Substance: LANREOTIDE
     Indication: ACROMEGALY
     Dosage: 60 MILLIGRAM, QMO
     Route: 058
     Dates: start: 20160329
  6. ELIQUIS [Concomitant]
     Active Substance: APIXABAN
     Dosage: 5 MILLIGRAM, BID
  7. AVILAC [GALACTOSE;LACTOSE ANHYDROUS;LACTULOSE] [Concomitant]
     Dosage: 30 MILLILITER, QD
  8. ELTROXIN [Concomitant]
     Active Substance: LEVOTHYROXINE
     Indication: HYPOTHYROIDISM
  9. EUTHYROX [Concomitant]
     Active Substance: LEVOTHYROXINE SODIUM
     Dosage: 50 MICROGRAM, QD

REACTIONS (6)
  - Acute coronary syndrome [Unknown]
  - Atrial fibrillation [Unknown]
  - Pulmonary congestion [Recovering/Resolving]
  - Complication associated with device [Unknown]
  - Pollakiuria [Unknown]
  - Tachycardia [Unknown]

NARRATIVE: CASE EVENT DATE: 20181106
